FAERS Safety Report 7990863-5 (Version None)
Quarter: 2011Q4

REPORT INFORMATION
  Report Type: 
  Country: None (occurrence: None)
  Receive Date: 20111219
  Receipt Date: 20111018
  Transmission Date: 20120403
  Serious: Yes (Hospitalization)
  Sender: FDA-Public Use
  Company Number: DE-ROCHE-1010700

PATIENT
  Sex: Female
  Weight: 69 kg

DRUGS (4)
  1. HERCEPTIN [Suspect]
     Indication: BREAST CANCER
     Dosage: DOSE LEVEL: 6 MG/KG; LAST DOSE PRIOR TO SAE: 24/JAN/2011
     Route: 042
  2. AVASTIN [Suspect]
     Indication: BREAST CANCER
     Dosage: DOSE FORM: VIALS; DOSE LEVEL: 15 MG/KG; LAST DOSE PRIOR TO SAE: 22 NOV 2010.
     Route: 042
  3. CARBOPLATIN [Suspect]
     Indication: BREAST CANCER
     Dosage: DOSE LEVEL: 6 AUC; LAST DOSE PRIOR TO SAE: 24/JAN/2011
     Route: 042
  4. DOCETAXEL [Suspect]
     Indication: BREAST CANCER
     Dosage: DOSE FORM: VIALS; DOSE LEVEL: 75 MG/M2; LAST DOSE PRIOR TO SAE: 24 JAN 2011
     Route: 042

REACTIONS (1)
  - VENOUS THROMBOSIS [None]
